FAERS Safety Report 10924144 (Version 1)
Quarter: 2015Q1

REPORT INFORMATION
  Report Type: Spontaneous
  Country: None (occurrence: None)
  Receive Date: 20150130
  Receipt Date: 20150130
  Transmission Date: 20150721
  Serious: Yes (Hospitalization, Other)
  Sender: FDA-Public Use
  Company Number: 2014GMK011864

PATIENT
  Age: 54 Year
  Sex: Female

DRUGS (1)
  1. RIZATRIPTAN BENZOATE. [Suspect]
     Active Substance: RIZATRIPTAN BENZOATE
     Indication: MIGRAINE
     Dosage: 1 DF, SINGLE, ORAL
     Route: 048
     Dates: start: 20130703, end: 20130703

REACTIONS (3)
  - Product substitution issue [None]
  - Myocardial infarction [None]
  - Asthenia [None]

NARRATIVE: CASE EVENT DATE: 20130703
